FAERS Safety Report 4350168-0 (Version None)
Quarter: 2004Q2

REPORT INFORMATION
  Report Type: 
  Country: None (occurrence: None)
  Receive Date: 20040426
  Receipt Date: 20040413
  Transmission Date: 20050107
  Serious: Yes (Hospitalization)
  Sender: FDA-Public Use
  Company Number: 2004024856

PATIENT
  Age: 1 Day
  Sex: Male
  Weight: 3.68 kg

DRUGS (2)
  1. ZOLOFT [Suspect]
     Indication: DEPRESSION
     Dosage: 150 MG (DAILY), ORAL
     Route: 048
     Dates: start: 20030101
  2. RISPERIDONE (RISPRIDONE) [Suspect]
     Indication: DEPRESSION
     Dosage: 0.25 MG (DAILY), ORAL
     Route: 048

REACTIONS (2)
  - DRUG WITHDRAWAL SYNDROME NEONATAL [None]
  - MATERNAL DRUGS AFFECTING FOETUS [None]
